FAERS Safety Report 10643380 (Version 1)
Quarter: 2014Q4

REPORT INFORMATION
  Report Type: Spontaneous
  Country: US (occurrence: None)
  Receive Date: 20141121
  Receipt Date: 20141121
  Transmission Date: 20150529
  Serious: No
  Sender: FDA-Public Use
  Company Number: 163-10004-14091430

PATIENT
  Age: 40 Year
  Sex: Female

DRUGS (7)
  1. DETEMIR [Concomitant]
  2. FUROSEMIDE. [Concomitant]
     Active Substance: FUROSEMIDE
  3. FEXOFENADINE [Concomitant]
     Active Substance: FEXOFENADINE\FEXOFENADINE HYDROCHLORIDE
  4. LOSARTAN/HCTZ (HYZAAR) [Concomitant]
  5. PRAVASTATIN [Concomitant]
     Active Substance: PRAVASTATIN\PRAVASTATIN SODIUM
  6. OTEZLA [Suspect]
     Active Substance: APREMILAST
     Indication: PSORIATIC ARTHROPATHY
     Dosage: TITRATION, 2 IN 1 D, PO
     Route: 048
     Dates: start: 20140829
  7. HUMAN INSULIN [Concomitant]
     Active Substance: INSULIN HUMAN

REACTIONS (7)
  - Acne cystic [None]
  - Headache [None]
  - Pain in extremity [None]
  - Nausea [None]
  - Diarrhoea [None]
  - Psoriasis [None]
  - Asthenia [None]

NARRATIVE: CASE EVENT DATE: 20140831
